FAERS Safety Report 5461111-5 (Version None)
Quarter: 2007Q3

REPORT INFORMATION
  Report Type: 
  Country: None (occurrence: None)
  Receive Date: 20070920
  Receipt Date: 20070914
  Transmission Date: 20080115
  Serious: Yes (Other)
  Sender: FDA-Public Use
  Company Number: PHEH2007US02238

PATIENT
  Age: 67 Year
  Sex: Female

DRUGS (8)
  1. SANDOSTATIN LAR [Suspect]
     Indication: CARCINOID SYNDROME
     Dosage: 40 MG Q3WEEKS
     Dates: start: 20020901
  2. VITAMIN D [Concomitant]
     Dosage: 50000 U, QW
     Dates: end: 20070208
  3. VITAMIN D [Concomitant]
     Dosage: 50000 U, QW
  4. VITAMIN A [Concomitant]
     Dates: end: 20070208
  5. VITAMIN B COMPLEX CAP [Concomitant]
     Dates: end: 20070208
  6. ASCORBIC ACID [Concomitant]
  7. VITAMIN E [Concomitant]
     Dates: end: 20070208
  8. LOMOTIL [Concomitant]

REACTIONS (6)
  - BIOPSY BREAST ABNORMAL [None]
  - BREAST CANCER [None]
  - DIARRHOEA [None]
  - MALIGNANT BREAST LUMP REMOVAL [None]
  - METASTASES TO HEART [None]
  - METASTASES TO PANCREAS [None]
